FAERS Safety Report 23969163 (Version 1)
Quarter: 2024Q2

REPORT INFORMATION
  Report Type: Spontaneous
  Country: JP (occurrence: JP)
  Receive Date: 20240612
  Receipt Date: 20240612
  Transmission Date: 20240716
  Serious: Yes (Other)
  Sender: FDA-Public Use
  Company Number: JP-NEUROCRINE BIOSCIENCES INC.-2024NBI04021

PATIENT
  Age: 9 Decade
  Sex: Female

DRUGS (2)
  1. VALBENAZINE [Suspect]
     Active Substance: VALBENAZINE
     Indication: Product used for unknown indication
     Dosage: UNK
     Route: 048
     Dates: start: 20240409, end: 20240411
  2. VALBENAZINE [Suspect]
     Active Substance: VALBENAZINE
     Dosage: UNK
     Route: 048

REACTIONS (4)
  - Myocardial infarction [Unknown]
  - Hyperhidrosis [Unknown]
  - Sensory disturbance [Unknown]
  - Discomfort [Unknown]
